FAERS Safety Report 12496509 (Version 1)
Quarter: 2016Q2

REPORT INFORMATION
  Report Type: Spontaneous
  Country: DE (occurrence: DE)
  Receive Date: 20160624
  Receipt Date: 20160624
  Transmission Date: 20160815
  Serious: Yes (Hospitalization, Other)
  Sender: FDA-Public Use
  Company Number: DE-GLAXOSMITHKLINE-DE2016GSK061773

PATIENT
  Sex: Female

DRUGS (2)
  1. VIMPAT [Interacting]
     Active Substance: LACOSAMIDE
     Indication: EPILEPSY
     Dosage: UNK
     Route: 048
     Dates: start: 2015
  2. LAMICTAL [Suspect]
     Active Substance: LAMOTRIGINE
     Indication: EPILEPSY
     Route: 048

REACTIONS (6)
  - Drug interaction [Unknown]
  - Dizziness [Unknown]
  - Vomiting [Unknown]
  - Loss of consciousness [Unknown]
  - Ataxia [Unknown]
  - Cough [Unknown]

NARRATIVE: CASE EVENT DATE: 2016
